FAERS Safety Report 6126274-7 (Version None)
Quarter: 2009Q1

REPORT INFORMATION
  Report Type: 
  Country: None (occurrence: None)
  Receive Date: 20090318
  Receipt Date: 20090303
  Transmission Date: 20090719
  Serious: Yes (Hospitalization)
  Sender: FDA-Public Use
  Company Number: 2009S1003670

PATIENT
  Age: 93 Year
  Sex: Male

DRUGS (1)
  1. FUROSEMIDE [Suspect]
     Indication: OEDEMA PERIPHERAL
     Dosage: 80 MG; DAILY; ORAL
     Route: 048
     Dates: start: 20080201, end: 20090101

REACTIONS (1)
  - GENERALISED ERYTHEMA [None]
